FAERS Safety Report 4886528-9 (Version None)
Quarter: 2006Q1

REPORT INFORMATION
  Report Type: 
  Country: None (occurrence: None)
  Receive Date: 20060120
  Receipt Date: 20060117
  Transmission Date: 20060701
  Serious: Yes (Hospitalization)
  Sender: FDA-Public Use
  Company Number: JP-AVENTIS-200610145JP

PATIENT
  Age: 70 Year
  Sex: Male

DRUGS (3)
  1. AMARYL [Suspect]
     Dates: start: 20051201, end: 20051229
  2. MEDET [Concomitant]
  3. ACTOS [Concomitant]

REACTIONS (1)
  - HYPOGLYCAEMIC COMA [None]
